FAERS Safety Report 14794822 (Version 1)
Quarter: 2018Q2

REPORT INFORMATION
  Report Type: Spontaneous
  Country: AT (occurrence: AT)
  Receive Date: 20180423
  Receipt Date: 20180423
  Transmission Date: 20180711
  Serious: Yes (Other)
  Sender: FDA-Public Use
  Company Number: AT-PFIZER INC-2018154470

PATIENT
  Sex: Female

DRUGS (3)
  1. DOXORUBICIN HCL [Suspect]
     Active Substance: DOXORUBICIN HYDROCHLORIDE
     Dosage: UNK
     Dates: start: 201705, end: 201707
  2. VOTRIENT [Suspect]
     Active Substance: PAZOPANIB HYDROCHLORIDE
     Dosage: UNK
     Dates: start: 201702, end: 201705
  3. OLARATUMAB [Suspect]
     Active Substance: OLARATUMAB
     Dosage: UNK
     Dates: start: 201705, end: 201707

REACTIONS (7)
  - Hepatic enzyme increased [Recovered/Resolved]
  - Neoplasm progression [Unknown]
  - C-reactive protein increased [Unknown]
  - Haematocrit decreased [Unknown]
  - Gamma-glutamyltransferase increased [Unknown]
  - Blood glucose increased [Unknown]
  - Blood bilirubin increased [Unknown]
